FAERS Safety Report 6149573-1 (Version None)
Quarter: 2009Q2

REPORT INFORMATION
  Report Type: 
  Country: None (occurrence: None)
  Receive Date: 20090409
  Receipt Date: 20090402
  Transmission Date: 20091009
  Serious: Yes (Death)
  Sender: FDA-Public Use
  Company Number: BR-JNJFOC-20090401447

PATIENT
  Age: 79 Year
  Sex: Male

DRUGS (2)
  1. REMINYL ER [Suspect]
     Indication: DEMENTIA
  2. QUETIAPINE FUMARATE [Concomitant]
     Indication: DEMENTIA

REACTIONS (1)
  - DEATH [None]
